FAERS Safety Report 19985027 (Version 1)
Quarter: 2021Q4

REPORT INFORMATION
  Report Type: Spontaneous
  Country: US (occurrence: US)
  Receive Date: 20211022
  Receipt Date: 20211022
  Transmission Date: 20220303
  Serious: Yes (Other)
  Sender: FDA-Public Use
  Company Number: US-AMNEAL PHARMACEUTICALS-2021-AMRX-04316

PATIENT
  Age: 41 Year
  Sex: Male

DRUGS (1)
  1. AMLODIPINE BESYLATE [Suspect]
     Active Substance: AMLODIPINE BESYLATE
     Indication: Product used for unknown indication
     Dosage: 600 MG
     Route: 048

REACTIONS (3)
  - Cardiogenic shock [Recovered/Resolved]
  - Acute kidney injury [Unknown]
  - Intentional overdose [Unknown]
